FAERS Safety Report 9297693 (Version 2)
Quarter: 2013Q4

REPORT INFORMATION
  Report Type: Spontaneous
  Country: FR (occurrence: FR)
  Receive Date: 20130520
  Receipt Date: 20131003
  Transmission Date: 20140711
  Serious: Yes (Other)
  Sender: FDA-Public Use
  Company Number: PHHY2013FR049213

PATIENT
  Sex: 0

DRUGS (4)
  1. TASIGNA [Suspect]
     Indication: CHRONIC MYELOID LEUKAEMIA
     Dosage: 400 MG, BID
     Route: 048
     Dates: start: 20110909, end: 201109
  2. TASIGNA [Suspect]
     Dosage: 300 MG, BID
     Route: 048
     Dates: start: 20110920, end: 20130320
  3. INEGY [Concomitant]
  4. EXFORGE [Concomitant]
     Indication: HYPERTENSION
     Dates: start: 20130109

REACTIONS (3)
  - Arterial stenosis [Recovering/Resolving]
  - Hypertension [Recovered/Resolved]
  - Pain in extremity [Recovered/Resolved]
